FAERS Safety Report 25683367 (Version 5)
Quarter: 2025Q4

REPORT INFORMATION
  Report Type: Spontaneous
  Country: JP (occurrence: JP)
  Receive Date: 20250814
  Receipt Date: 20251222
  Transmission Date: 20260117
  Serious: Yes (Hospitalization, Other)
  Sender: APELLIS PHARMACEUTICALS
  Company Number: JP-BIOVITRUM-2025-JP-009057

PATIENT

DRUGS (1)
  1. EMPAVELI [Suspect]
     Active Substance: PEGCETACOPLAN
     Indication: Paroxysmal nocturnal haemoglobinuria
     Dosage: TWICE/WEEK
     Route: 058
     Dates: start: 20250624, end: 20250708

REACTIONS (20)
  - Dizziness [Unknown]
  - Pyrexia [Recovered/Resolved]
  - Fall [Unknown]
  - Swelling [Unknown]
  - Haemorrhage subcutaneous [Unknown]
  - Malaise [Not Recovered/Not Resolved]
  - Physical deconditioning [Unknown]
  - Mobility decreased [Unknown]
  - COVID-19 [Unknown]
  - Anaemia [Recovered/Resolved]
  - Insomnia [Recovered/Resolved]
  - Arthralgia [Recovering/Resolving]
  - Joint swelling [Recovering/Resolving]
  - Feeling hot [Recovering/Resolving]
  - Arthropod bite [Unknown]
  - Haemolysis [Recovered/Resolved]
  - Haemoglobin decreased [Unknown]
  - Infection [Unknown]
  - Product dose omission issue [Unknown]
  - Drug resistance [Unknown]

NARRATIVE: CASE EVENT DATE: 20250624
